FAERS Safety Report 17190307 (Version 1)
Quarter: 2019Q4

REPORT INFORMATION
  Report Type: Spontaneous
  Country: US (occurrence: US)
  Receive Date: 20191223
  Receipt Date: 20191223
  Transmission Date: 20200122
  Serious: No
  Sender: FDA-Public Use
  Company Number: US-BAYER-2019-234326

PATIENT
  Age: 82 Year
  Sex: Male

DRUGS (2)
  1. MIRALAX [Suspect]
     Active Substance: POLYETHYLENE GLYCOL 3350
     Indication: CONSTIPATION PROPHYLAXIS
     Dosage: 17 G, QD
     Route: 048
     Dates: start: 20191119
  2. COLACE [Concomitant]
     Active Substance: DOCUSATE SODIUM
     Dosage: 2 DF, QD

REACTIONS (3)
  - Off label use [Unknown]
  - Wrong technique in product usage process [None]
  - Product use in unapproved indication [Unknown]

NARRATIVE: CASE EVENT DATE: 201911
